FAERS Safety Report 5970023-X (Version None)
Quarter: 2008Q4

REPORT INFORMATION
  Report Type: 
  Country: None (occurrence: None)
  Receive Date: 20081126
  Receipt Date: 20081119
  Transmission Date: 20090506
  Serious: Yes (Death, Hospitalization, Disabling)
  Sender: FDA-Public Use
  Company Number: CG-MERCK-0811USA03639

PATIENT
  Age: 56 Year
  Sex: Male

DRUGS (1)
  1. STROMECTOL [Suspect]
     Indication: ONCHOCERCIASIS
     Route: 048
     Dates: start: 20081012, end: 20081012

REACTIONS (9)
  - ASTHENIA [None]
  - EXTENSOR PLANTAR RESPONSE [None]
  - JOINT STIFFNESS [None]
  - MYALGIA [None]
  - NECK PAIN [None]
  - NUCHAL RIGIDITY [None]
  - PYREXIA [None]
  - TYPE 2 DIABETES MELLITUS [None]
  - URINARY RETENTION [None]
